FAERS Safety Report 23358984 (Version 2)
Quarter: 2024Q1

REPORT INFORMATION
  Report Type: Spontaneous
  Country: AR (occurrence: AR)
  Receive Date: 20240102
  Receipt Date: 20240122
  Transmission Date: 20240410
  Serious: Yes (Other)
  Sender: FDA-Public Use
  Company Number: AR-PFIZER INC-PV202300207633

PATIENT
  Age: 71 Year
  Sex: Female

DRUGS (1)
  1. AROMASIN [Suspect]
     Active Substance: EXEMESTANE
     Indication: Breast cancer metastatic
     Dosage: 25 MG, DAILY
     Dates: start: 20200630

REACTIONS (2)
  - Immobile [Not Recovered/Not Resolved]
  - Mobility decreased [Not Recovered/Not Resolved]
